FAERS Safety Report 20899951 (Version 1)
Quarter: 2022Q2

REPORT INFORMATION
  Report Type: Spontaneous
  Country: US (occurrence: None)
  Receive Date: 20220531
  Receipt Date: 20220531
  Transmission Date: 20220721
  Serious: Yes (Life-Threatening)
  Sender: FDA-Public Use
  Company Number: None

PATIENT
  Age: 47 Year
  Sex: Female
  Weight: 75 kg

DRUGS (1)
  1. ZERBAXA [Suspect]
     Active Substance: CEFTOLOZANE SULFATE\TAZOBACTAM SODIUM
     Route: 042
     Dates: start: 20220525, end: 20220525

REACTIONS (9)
  - Body temperature increased [None]
  - Heart rate increased [None]
  - Hypertension [None]
  - Tremor [None]
  - Neck pain [None]
  - Cough [None]
  - Hypoxia [None]
  - Hyperhidrosis [None]
  - Hypersensitivity [None]

NARRATIVE: CASE EVENT DATE: 20220525
